FAERS Safety Report 5125561-9 (Version None)
Quarter: 2006Q4

REPORT INFORMATION
  Report Type: 
  Country: None (occurrence: None)
  Receive Date: 20061006
  Receipt Date: 20061002
  Transmission Date: 20070319
  Serious: Yes (Other)
  Sender: FDA-Public Use
  Company Number: HQWYE215517JUL04

PATIENT
  Age: 48 Year
  Sex: Female

DRUGS (1)
  1. PREMARIN [Suspect]
     Indication: HORMONE REPLACEMENT THERAPY
     Dosage: ^YELLOW PILL^, ORAL
     Route: 048
     Dates: start: 19820601, end: 19850101

REACTIONS (1)
  - BREAST CANCER RECURRENT [None]
